FAERS Safety Report 22963098 (Version 2)
Quarter: 2023Q4

REPORT INFORMATION
  Report Type: Spontaneous
  Country: US (occurrence: US)
  Receive Date: 20230920
  Receipt Date: 20231117
  Transmission Date: 20240109
  Serious: Yes (Other)
  Sender: FDA-Public Use
  Company Number: US-PFIZER INC-PV202300157360

PATIENT
  Age: 71 Year
  Sex: Female
  Weight: 63 kg

DRUGS (1)
  1. HEPARIN SODIUM [Suspect]
     Active Substance: HEPARIN SODIUM
     Dosage: UNK

REACTIONS (5)
  - Gastrointestinal haemorrhage [Unknown]
  - Shock haemorrhagic [Unknown]
  - Erosive oesophagitis [Unknown]
  - Gastric ulcer [Unknown]
  - Chest pain [Unknown]
